FAERS Safety Report 4317305-5 (Version None)
Quarter: 2004Q1

REPORT INFORMATION
  Report Type: 
  Country: None (occurrence: None)
  Receive Date: 20040315
  Receipt Date: 20040315
  Transmission Date: 20041129
  Serious: Yes (Hospitalization)
  Sender: FDA-Public Use
  Company Number: None

PATIENT
  Age: 71 Year
  Sex: Female
  Weight: 89.8122 kg

DRUGS (1)
  1. BLEOMYCIN [Suspect]
     Indication: GLIOBLASTOMA MULTIFORME
     Dosage: 15 UNITS/WEEK GIVEN  (SEE IMAGE PARTIALLY ILLEGIBLE)
     Dates: start: 20031223, end: 20040302

REACTIONS (2)
  - DEEP VEIN THROMBOSIS [None]
  - PULMONARY EMBOLISM [None]
